FAERS Safety Report 15695980 (Version 2)
Quarter: 2018Q4

REPORT INFORMATION
  Report Type: Report from Study
  Country: US (occurrence: US)
  Receive Date: 20181206
  Receipt Date: 20181219
  Transmission Date: 20190205
  Serious: Yes (Death, Hospitalization)
  Sender: FDA-Public Use
  Company Number: US-EISAI MEDICAL RESEARCH-EC-2018-046516

PATIENT
  Age: 50 Year
  Sex: Male
  Weight: 85 kg

DRUGS (9)
  1. PRILOSEC [Concomitant]
     Active Substance: OMEPRAZOLE MAGNESIUM
  2. MIRTAZAPINE. [Concomitant]
     Active Substance: MIRTAZAPINE
  3. LENVIMA [Suspect]
     Active Substance: LENVATINIB
     Indication: RENAL CANCER
     Route: 048
     Dates: start: 20181009, end: 201811
  4. OXYCODONE [Concomitant]
     Active Substance: OXYCODONE
  5. SENNA [Concomitant]
     Active Substance: SENNA LEAF\SENNOSIDES\SENNOSIDES A AND B
  6. DEXAMETHASONE. [Concomitant]
     Active Substance: DEXAMETHASONE
  7. AFINITOR [Suspect]
     Active Substance: EVEROLIMUS
     Indication: PRODUCT USED FOR UNKNOWN INDICATION
     Dosage: UNKNOWN
     Route: 048
     Dates: start: 2018, end: 201811
  8. DIFLUCAN [Concomitant]
     Active Substance: FLUCONAZOLE
  9. DURAGESIC [Concomitant]
     Active Substance: FENTANYL

REACTIONS (4)
  - Drug ineffective [Not Recovered/Not Resolved]
  - Death [Fatal]
  - Platelet count decreased [Not Recovered/Not Resolved]
  - Blood pressure increased [Not Recovered/Not Resolved]

NARRATIVE: CASE EVENT DATE: 20181017
